FAERS Safety Report 22158083 (Version 1)
Quarter: 2023Q1

REPORT INFORMATION
  Report Type: Spontaneous
  Country: US (occurrence: US)
  Receive Date: 20230330
  Receipt Date: 20230330
  Transmission Date: 20230417
  Serious: Yes (Other)
  Sender: FDA-Public Use
  Company Number: US-PRINSTON PHARMACEUTICAL INC.-2023PRN00120

PATIENT
  Age: 72 Year
  Sex: Female

DRUGS (8)
  1. DOXYCYCLINE HYCLATE [Suspect]
     Active Substance: DOXYCYCLINE HYCLATE
     Indication: Bacterial infection
     Dosage: 100 MG
     Route: 042
  2. SODIUM CHLORIDE [Concomitant]
     Active Substance: SODIUM CHLORIDE
     Dosage: 100 ML
     Route: 042
  3. DEXAMETHASONE [Concomitant]
     Active Substance: DEXAMETHASONE
     Indication: COVID-19 pneumonia
     Dosage: UNK
  4. ALBUTEROL SULFATE [Concomitant]
     Active Substance: ALBUTEROL SULFATE
     Indication: COVID-19 pneumonia
     Dosage: UNK
  5. OXYGEN [Concomitant]
     Active Substance: OXYGEN
     Indication: COVID-19 pneumonia
  6. ENOXAPARIN [Concomitant]
     Active Substance: ENOXAPARIN
     Indication: Blood disorder prophylaxis
  7. VANCOMYCIN [Concomitant]
     Active Substance: VANCOMYCIN
     Indication: Bacterial infection
  8. MEROPENEM [Concomitant]
     Active Substance: MEROPENEM
     Indication: Bacterial infection

REACTIONS (2)
  - Compartment syndrome [Recovered/Resolved]
  - Infusion site extravasation [Recovered/Resolved]
